FAERS Safety Report 23483783 (Version 5)
Quarter: 2024Q2

REPORT INFORMATION
  Report Type: Spontaneous
  Country: DE (occurrence: DE)
  Receive Date: 20240205
  Receipt Date: 20240424
  Transmission Date: 20240715
  Serious: Yes (Death, Hospitalization, Other)
  Sender: FDA-Public Use
  Company Number: DE-BIOMARINAP-DE-2024-155471

PATIENT

DRUGS (1)
  1. VOXZOGO [Suspect]
     Active Substance: VOSORITIDE
     Indication: Osteochondrodysplasia
     Dosage: 0.35 MILLILITER, QD
     Route: 058
     Dates: start: 20231127

REACTIONS (21)
  - Cardiac arrest [Fatal]
  - Brain death [Unknown]
  - Brain oedema [Unknown]
  - Cerebral hypoperfusion [Unknown]
  - Hypoxic-ischaemic encephalopathy [Unknown]
  - Respiratory failure [Unknown]
  - General physical health deterioration [Unknown]
  - Influenza [Unknown]
  - Lactic acidosis [Unknown]
  - Hypotension [Unknown]
  - Upper respiratory tract infection [Unknown]
  - Sinusitis [Unknown]
  - Acute kidney injury [Unknown]
  - Urinary tract infection [Unknown]
  - Hepatic function abnormal [Unknown]
  - Thrombocytosis [Unknown]
  - Hyperuricaemia [Unknown]
  - Hyperphosphataemia [Unknown]
  - Hypermagnesaemia [Unknown]
  - Hypernatraemia [Unknown]
  - Lung infiltration [Unknown]

NARRATIVE: CASE EVENT DATE: 20240101
